FAERS Safety Report 20364068 (Version 1)
Quarter: 2022Q1

REPORT INFORMATION
  Report Type: Spontaneous
  Country: FR (occurrence: FR)
  Receive Date: 20220121
  Receipt Date: 20220121
  Transmission Date: 20220423
  Serious: Yes (Other)
  Sender: FDA-Public Use
  Company Number: None

PATIENT
  Age: 72 Year
  Sex: Female

DRUGS (2)
  1. IOPAMIDOL [Suspect]
     Active Substance: IOPAMIDOL
     Indication: Joint injection
     Dosage: 1 DF(GTT), SINGLE
     Route: 042
     Dates: start: 20210607, end: 20210607
  2. HYDROCORTISONE [Suspect]
     Active Substance: HYDROCORTISONE
     Indication: Joint injection
     Dosage: 1 DF (GTT), SINGLE
     Route: 014
     Dates: start: 20210607, end: 20210607

REACTIONS (2)
  - Kounis syndrome [Recovered/Resolved]
  - Allergy test negative [Recovered/Resolved]

NARRATIVE: CASE EVENT DATE: 20210607
